FAERS Safety Report 15296365 (Version 2)
Quarter: 2018Q3

REPORT INFORMATION
  Report Type: Spontaneous
  Country: BR (occurrence: BR)
  Receive Date: 20180820
  Receipt Date: 20180828
  Transmission Date: 20181010
  Serious: Yes (Other)
  Sender: FDA-Public Use
  Company Number: BR-PFIZER INC-2018331891

PATIENT
  Age: 73 Year
  Sex: Female
  Weight: 75 kg

DRUGS (1)
  1. XALACOM [Suspect]
     Active Substance: LATANOPROST\TIMOLOL MALEATE
     Indication: INTRAOCULAR PRESSURE TEST
     Dosage: 1 DROP IN EACH EYE BY THE MORNING
     Route: 047

REACTIONS (8)
  - Visual impairment [Recovering/Resolving]
  - Intraocular pressure increased [Recovered/Resolved]
  - Vision blurred [Recovering/Resolving]
  - Condition aggravated [Recovered/Resolved]
  - Eye inflammation [Recovering/Resolving]
  - Cataract [Unknown]
  - Eye pain [Recovering/Resolving]
  - Condition aggravated [Unknown]
